FAERS Safety Report 15575261 (Version 2)
Quarter: 2018Q4

REPORT INFORMATION
  Report Type: Report from Study
  Country: US (occurrence: US)
  Receive Date: 20181101
  Receipt Date: 20181107
  Transmission Date: 20190205
  Serious: Yes (Other)
  Sender: FDA-Public Use
  Company Number: US-AMGEN-USASL2018118912

PATIENT
  Age: 72 Year
  Sex: Female

DRUGS (5)
  1. VITAMIN D [Concomitant]
     Active Substance: CHOLECALCIFEROL
     Dosage: UNK
  2. PROLIA [Suspect]
     Active Substance: DENOSUMAB
     Indication: OSTEOPOROSIS POSTMENOPAUSAL
     Dosage: UNK
     Route: 065
     Dates: start: 2015
  3. CALCIUM [Concomitant]
     Active Substance: CALCIUM
     Dosage: EXTRA, UNK
  4. RANITIDINE. [Concomitant]
     Active Substance: RANITIDINE
     Dosage: 300 MG, QD (IN PM)
  5. NEXIUM [Concomitant]
     Active Substance: ESOMEPRAZOLE MAGNESIUM
     Dosage: 40 MG, QD (IN AM)

REACTIONS (9)
  - Abscess oral [Recovering/Resolving]
  - Scar [Recovering/Resolving]
  - Chronic lymphocytic leukaemia [Not Recovered/Not Resolved]
  - Bruxism [Recovering/Resolving]
  - Paraesthesia oral [Recovered/Resolved]
  - Temporomandibular joint syndrome [Recovering/Resolving]
  - Toothache [Recovering/Resolving]
  - Hypoaesthesia oral [Recovering/Resolving]
  - Dental restoration failure [Unknown]

NARRATIVE: CASE EVENT DATE: 201708
